FAERS Safety Report 6315207-6 (Version None)
Quarter: 2009Q3

REPORT INFORMATION
  Report Type: 
  Country: None (occurrence: None)
  Receive Date: 20090819
  Receipt Date: 20090811
  Transmission Date: 20100115
  Serious: Yes (Other)
  Sender: FDA-Public Use
  Company Number: JP-MERCK-0908USA02513

PATIENT
  Age: 57 Year
  Sex: Male

DRUGS (7)
  1. PEPCID RPD [Suspect]
     Route: 048
  2. SEROQUEL [Suspect]
     Route: 048
  3. MYSLEE [Suspect]
     Route: 048
  4. VITAMEDIN [Concomitant]
     Route: 065
  5. CISPLATIN [Concomitant]
     Route: 065
  6. TAXOL [Concomitant]
     Route: 065
  7. FLUOROURACIL [Concomitant]
     Route: 065

REACTIONS (1)
  - DIABETES INSIPIDUS [None]
